FAERS Safety Report 5275239-6 (Version None)
Quarter: 2007Q1

REPORT INFORMATION
  Report Type: 
  Country: None (occurrence: None)
  Receive Date: 20061213
  Receipt Date: 20060202
  Transmission Date: 20070707
  Serious: Yes (Other)
  Sender: FDA-Public Use
  Company Number: 2006UW01861

PATIENT
  Sex: Female

DRUGS (3)
  1. SEROQUEL [Suspect]
     Dosage: 300 MG ONCE;PO
     Route: 048
  2. DIABETES MEDICATION [Concomitant]
  3. HIGH BLOOD PRESSURE MEDICATION [Concomitant]

REACTIONS (2)
  - HEART RATE INCREASED [None]
  - WRONG DRUG ADMINISTERED [None]
